FAERS Safety Report 6389627-8 (Version None)
Quarter: 2009Q4

REPORT INFORMATION
  Report Type: 
  Country: None (occurrence: None)
  Receive Date: 20091006
  Receipt Date: 20090924
  Transmission Date: 20100525
  Serious: Yes (Other)
  Sender: FDA-Public Use
  Company Number: PHHY2009MX41734

PATIENT
  Age: 72 Year
  Sex: Female

DRUGS (6)
  1. ZELMAC [Suspect]
     Indication: IRRITABLE BOWEL SYNDROME
     Dosage: 2 TABLETS (6MG)/DAY
     Route: 048
  2. FOSAMAX [Concomitant]
     Indication: OSTEOPOROSIS
  3. LYRICA [Concomitant]
     Indication: OSTEOPOROSIS
  4. DICLOFENAC SODIUM [Concomitant]
     Indication: OSTEOPOROSIS
  5. DOLAC [Concomitant]
     Indication: OSTEOPOROSIS
  6. PEMIX [Concomitant]
     Indication: OSTEOPOROSIS

REACTIONS (2)
  - BONE OPERATION [None]
  - EYE OPERATION [None]
